FAERS Safety Report 5482289-3 (Version None)
Quarter: 2007Q4

REPORT INFORMATION
  Report Type: 
  Country: None (occurrence: None)
  Receive Date: 20071011
  Receipt Date: 20071002
  Transmission Date: 20080405
  Serious: Yes (Disabling)
  Sender: FDA-Public Use
  Company Number: DE-JNJFOC-20070904134

PATIENT
  Age: 65 Year
  Sex: Male

DRUGS (1)
  1. TAVANIC [Suspect]
     Indication: INFECTION PROPHYLAXIS
     Route: 048
     Dates: start: 20061024, end: 20061026

REACTIONS (16)
  - ANXIETY [None]
  - ARTHRALGIA [None]
  - BALANCE DISORDER [None]
  - DIZZINESS [None]
  - DRUG INTOLERANCE [None]
  - DRY MOUTH [None]
  - DYSARTHRIA [None]
  - FEELING OF BODY TEMPERATURE CHANGE [None]
  - INSOMNIA [None]
  - MENTAL DISORDER [None]
  - MYALGIA [None]
  - POLYNEUROPATHY [None]
  - RESTLESSNESS [None]
  - SLEEP DISORDER [None]
  - TENDONITIS [None]
  - VISUAL DISTURBANCE [None]
